FAERS Safety Report 8059868-2 (Version None)
Quarter: 2012Q1

REPORT INFORMATION
  Report Type: 
  Country: None (occurrence: None)
  Receive Date: 20120120
  Receipt Date: 20120105
  Transmission Date: 20120608
  Serious: Yes (Life-Threatening, Hospitalization, Other)
  Sender: FDA-Public Use
  Company Number: ES-CELGENEUS-144-50794-12010696

PATIENT
  Sex: Male
  Weight: 73 kg

DRUGS (23)
  1. SIPRONOLACTONE [Concomitant]
     Route: 065
  2. FUSIDIC ACID [Concomitant]
     Indication: HIDRADENITIS
     Dosage: 2 MILLIGRAM
     Route: 065
     Dates: start: 20100409, end: 20100503
  3. VIDAZA [Suspect]
     Dosage: 75 MILLIGRAM/SQ. METER
     Route: 065
     Dates: start: 20100503, end: 20100511
  4. CAPTOPRIL [Concomitant]
     Dosage: 20 MILLIGRAM
     Route: 065
     Dates: start: 20100831, end: 20101014
  5. FUROSEMIDE [Concomitant]
     Dosage: 200 MILLIGRAM
     Route: 065
     Dates: start: 20100626, end: 20100626
  6. HYDROXIUREA [Concomitant]
     Indication: LEUKOCYTOSIS
     Route: 065
     Dates: start: 20100806
  7. HYDROXIUREA [Concomitant]
  8. ACYCLOVIR [Concomitant]
     Indication: PERIORBITAL CELLULITIS
     Route: 065
     Dates: start: 20100327, end: 20100418
  9. FUROSEMIDE [Concomitant]
     Indication: CARDIAC FAILURE
     Route: 065
  10. ENOXAPARIN [Concomitant]
     Indication: PROPHYLAXIS
     Dosage: 40
     Route: 065
     Dates: start: 20100331, end: 20101005
  11. VIDAZA [Suspect]
     Dosage: 75 MILLIGRAM/SQ. METER
     Route: 065
     Dates: start: 20100706, end: 20100714
  12. HYDROXIUREA [Concomitant]
     Route: 065
  13. POVIDONE IODINE [Concomitant]
     Indication: PERIORBITAL CELLULITIS
     Route: 065
     Dates: start: 20100406, end: 20100407
  14. LEVOFLOXACIN [Concomitant]
     Indication: HIDRADENITIS
     Route: 065
     Dates: start: 20100409, end: 20100418
  15. ATENOLOL [Concomitant]
     Dosage: 50-100 MG / DAY
     Route: 065
     Dates: start: 20100907, end: 20101201
  16. ERYTHROMYCIN [Concomitant]
     Indication: PERIORBITAL CELLULITIS
     Route: 061
     Dates: start: 20100408, end: 20100415
  17. AMOXICILLIN AND CLAVULANATE POTASSIUM [Concomitant]
     Indication: PERIORBITAL CELLULITIS
     Route: 065
     Dates: start: 20100330, end: 20100407
  18. RAMIPRIL [Concomitant]
     Dosage: 5
     Route: 065
  19. ALLOPURINOL [Concomitant]
     Indication: GOUT
     Route: 065
  20. MELPHALAN [Concomitant]
     Dosage: 1-2 MG / DAY
     Route: 065
     Dates: start: 20101112, end: 20101201
  21. VIDAZA [Suspect]
     Dosage: 75 MILLIGRAM/SQ. METER
     Route: 065
     Dates: start: 20100419, end: 20100420
  22. ACYCLOVIR [Concomitant]
     Route: 065
     Dates: start: 20100420, end: 20100426
  23. CLOXACILINE [Concomitant]
     Indication: PERIORBITAL CELLULITIS
     Dosage: 2000
     Route: 065
     Dates: start: 20100407, end: 20100418

REACTIONS (6)
  - FUNGAL INFECTION [None]
  - STAPHYLOCOCCAL BACTERAEMIA [None]
  - DEVICE RELATED INFECTION [None]
  - RESPIRATORY TRACT INFECTION VIRAL [None]
  - URINARY TRACT INFECTION [None]
  - PHLEBITIS INFECTIVE [None]
